FAERS Safety Report 6812646-1 (Version None)
Quarter: 2010Q3

REPORT INFORMATION
  Report Type: 
  Country: None (occurrence: None)
  Receive Date: 20100701
  Receipt Date: 20100622
  Transmission Date: 20110219
  Serious: Yes (Other)
  Sender: FDA-Public Use
  Company Number: GB-PFIZER INC-2010077453

PATIENT
  Age: 79 Year
  Sex: Male
  Weight: 68 kg

DRUGS (1)
  1. TRANEXAMIC ACID [Suspect]
     Indication: PROPHYLAXIS
     Dosage: 2000 MG, UNK
     Route: 042

REACTIONS (1)
  - ANAPHYLACTIC REACTION [None]
